FAERS Safety Report 5957286-1 (Version None)
Quarter: 2008Q4

REPORT INFORMATION
  Report Type: 
  Country: None (occurrence: None)
  Receive Date: 20081118
  Receipt Date: 20081114
  Transmission Date: 20090506
  Serious: Yes (Other)
  Sender: FDA-Public Use
  Company Number: US-B.I. PHARMACEUTICALS,INC./RIDGEFIELD-2008-BP-15280BP

PATIENT
  Sex: Female
  Weight: 103 kg

DRUGS (14)
  1. SPIRIVA [Suspect]
     Indication: CHRONIC OBSTRUCTIVE PULMONARY DISEASE
     Dosage: 18MCG
     Route: 055
     Dates: start: 20050124, end: 20081014
  2. SPIRIVA [Suspect]
     Indication: DYSPNOEA
  3. ADVAIR DISKUS 100/50 [Concomitant]
     Indication: CHRONIC OBSTRUCTIVE PULMONARY DISEASE
     Dates: start: 20020916
  4. SINGULAIR [Concomitant]
     Indication: ASTHMA
     Dosage: 10MG
     Dates: start: 20080115
  5. VITAMIN D [Concomitant]
     Indication: VITAMIN D DEFICIENCY
  6. LIPITOR [Concomitant]
     Indication: BLOOD CHOLESTEROL INCREASED
  7. ASPIRIN [Concomitant]
  8. NEXIUM [Concomitant]
  9. PROVENTIL [Concomitant]
     Dates: start: 20080421
  10. ZAROXOLYN [Concomitant]
  11. MECLIZINE [Concomitant]
  12. BENICAR [Concomitant]
  13. VITAMIN B COMPLEX CAP [Concomitant]
  14. ALBUTEROL SULFATE NEB [Concomitant]

REACTIONS (3)
  - BRONCHIECTASIS [None]
  - CARDIAC FAILURE CONGESTIVE [None]
  - DYSPHONIA [None]
